FAERS Safety Report 22915899 (Version 6)
Quarter: 2025Q4

REPORT INFORMATION
  Report Type: Spontaneous
  Country: US (occurrence: US)
  Receive Date: 20230907
  Receipt Date: 20251030
  Transmission Date: 20260118
  Serious: No
  Sender: TRAVERE THERAPEUTICS
  Company Number: US-TRAVERE-2023TVT00378

PATIENT
  Age: 68 Year
  Sex: Male

DRUGS (1)
  1. FILSPARI [Suspect]
     Active Substance: SPARSENTAN
     Indication: IgA nephropathy
     Dosage: LOT: NDC NUMBER: 68974020030 / RX NUMBER 4390377
     Route: 048
     Dates: start: 20230329

REACTIONS (4)
  - COVID-19 [Unknown]
  - Hypertension [Recovered/Resolved]
  - Pruritus [Unknown]
  - Flank pain [Unknown]
